FAERS Safety Report 5118117-5 (Version None)
Quarter: 2006Q3

REPORT INFORMATION
  Report Type: 
  Country: None (occurrence: None)
  Receive Date: 20060928
  Receipt Date: 20060928
  Transmission Date: 20061208
  Serious: Yes (Hospitalization)
  Sender: FDA-Public Use
  Company Number: None

PATIENT
  Age: 62 Year
  Sex: Female

DRUGS (3)
  1. GEMZAR [Suspect]
     Indication: PANCREATIC CARCINOMA
     Dosage: IV DRIP
     Route: 041
     Dates: start: 20060801, end: 20060815
  2. TAXOTERE [Suspect]
     Indication: PANCREATIC CARCINOMA
     Dosage: IV DRIP
     Route: 041
     Dates: start: 20060801, end: 20060815
  3. XELODA [Suspect]
     Indication: PANCREATIC CARCINOMA
     Dosage: 1500 MG/M2 DAILY PO
     Route: 048
     Dates: start: 20060801, end: 20060815

REACTIONS (1)
  - INFECTION [None]
